FAERS Safety Report 13608645 (Version 1)
Quarter: 2017Q2

REPORT INFORMATION
  Report Type: Spontaneous
  Country: US (occurrence: US)
  Receive Date: 20170602
  Receipt Date: 20170602
  Transmission Date: 20170830
  Serious: No
  Sender: FDA-Public Use
  Company Number: US-ASPEN PHARMA TRADING LIMITED US-AG-2017-003573

PATIENT
  Age: 5 Decade
  Sex: Female

DRUGS (3)
  1. CHLORAMBUCIL [Suspect]
     Active Substance: CHLORAMBUCIL
     Dosage: UNKNOWN DOSE (TITRATED FOR A TARGET WEEKLY WHITE BLOOD CELL COUNT), WEEKLY
     Route: 065
  2. CHLORAMBUCIL [Suspect]
     Active Substance: CHLORAMBUCIL
     Indication: EYE DISORDER
     Dosage: 6 MG, WEEKLY
     Route: 065
  3. PREDNISONE. [Suspect]
     Active Substance: PREDNISONE
     Indication: EYE DISORDER
     Dosage: 50 MG, DAILY
     Route: 065

REACTIONS (1)
  - Off label use [Unknown]
